FAERS Safety Report 15703106 (Version 1)
Quarter: 2018Q4

REPORT INFORMATION
  Report Type: Spontaneous
  Country: US (occurrence: US)
  Receive Date: 20181127
  Receipt Date: 20181127
  Transmission Date: 20190205
  Serious: Yes (Hospitalization, Disabling)
  Sender: FDA-Public Use
  Company Number: None

PATIENT
  Age: 28 Year
  Sex: Female
  Weight: 67.5 kg

DRUGS (9)
  1. GILENYA [Suspect]
     Active Substance: FINGOLIMOD HYDROCHLORIDE
     Indication: MULTIPLE SCLEROSIS
     Dosage: ?          QUANTITY:30 DF DOSAGE FORM;?
     Route: 048
  2. TYLEONL [Concomitant]
  3. ZOFRAN [Concomitant]
     Active Substance: ONDANSETRON HYDROCHLORIDE
  4. SENOKET [Concomitant]
  5. SULFAMETH [Concomitant]
  6. OMEPRAZOLE. [Concomitant]
     Active Substance: OMEPRAZOLE
  7. MULTIVITAMIN [Concomitant]
     Active Substance: VITAMINS
  8. VITAMIN D [Concomitant]
     Active Substance: CHOLECALCIFEROL
  9. VALTREX [Concomitant]
     Active Substance: VALACYCLOVIR HYDROCHLORIDE

REACTIONS (12)
  - Hypoaesthesia [None]
  - Nausea [None]
  - Loss of personal independence in daily activities [None]
  - Dizziness [None]
  - Paralysis [None]
  - Vision blurred [None]
  - Visual impairment [None]
  - Asthenia [None]
  - Fall [None]
  - Speech disorder [None]
  - Weight decreased [None]
  - Gait inability [None]

NARRATIVE: CASE EVENT DATE: 20181005
